FAERS Safety Report 19447066 (Version 1)
Quarter: 2021Q2

REPORT INFORMATION
  Report Type: Spontaneous
  Country: US (occurrence: US)
  Receive Date: 20210622
  Receipt Date: 20210622
  Transmission Date: 20210717
  Serious: No
  Sender: FDA-Public Use
  Company Number: US-HIKMA PHARMACEUTICALS USA INC.-US-H14001-21-02168

PATIENT
  Age: 88 Year
  Sex: Female
  Weight: 68.03 kg

DRUGS (1)
  1. FLUTICASONE. [Suspect]
     Active Substance: FLUTICASONE
     Indication: HYPERSENSITIVITY
     Dosage: 1 TO 2 SPRAYS OF FLUTICASONE PROPIONATE 50 MCG METERED SPRAY IN EACH NOSTRIL ONCE DAILY
     Route: 045
     Dates: start: 2020

REACTIONS (1)
  - Expired product administered [Unknown]

NARRATIVE: CASE EVENT DATE: 20210401
